FAERS Safety Report 17574915 (Version 6)
Quarter: 2020Q3

REPORT INFORMATION
  Report Type: Report from Study
  Country: None (occurrence: US)
  Receive Date: 20200324
  Receipt Date: 20200821
  Transmission Date: 20201102
  Serious: Yes (Death, Life-Threatening, Hospitalization)
  Sender: FDA-Public Use
  Company Number: US-ABBVIE-19K-163-3136706-00

PATIENT
  Age: 80 Year
  Sex: Male

DRUGS (2)
  1. IMBRUVICA [Suspect]
     Active Substance: IBRUTINIB
     Route: 048
     Dates: start: 20180206
  2. IMBRUVICA [Suspect]
     Active Substance: IBRUTINIB
     Indication: CHRONIC LYMPHOCYTIC LEUKAEMIA
     Dosage: UNK
     Route: 048
     Dates: start: 20180206, end: 20190127

REACTIONS (1)
  - Coronary artery disease [Recovering/Resolving]

NARRATIVE: CASE EVENT DATE: 20190101
